FAERS Safety Report 20937668 (Version 1)
Quarter: 2022Q2

REPORT INFORMATION
  Report Type: Spontaneous
  Country: US (occurrence: None)
  Receive Date: 20220608
  Receipt Date: 20220608
  Transmission Date: 20220721
  Serious: Yes (Other)
  Sender: FDA-Public Use
  Company Number: None

PATIENT
  Age: 41 Year
  Sex: Female
  Weight: 96.3 kg

DRUGS (1)
  1. TEZSPIRE [Suspect]
     Active Substance: TEZEPELUMAB-EKKO
     Indication: Asthma
     Dosage: OTHER FREQUENCY : Q4W;?
     Route: 058

REACTIONS (6)
  - Skin reaction [None]
  - Swelling face [None]
  - Hypersensitivity [None]
  - Infusion related reaction [None]
  - Wheezing [None]
  - Erythema [None]

NARRATIVE: CASE EVENT DATE: 20220415
